FAERS Safety Report 15893143 (Version 1)
Quarter: 2019Q1

REPORT INFORMATION
  Report Type: Report from Study
  Country: US (occurrence: US)
  Receive Date: 20190130
  Receipt Date: 20190130
  Transmission Date: 20190417
  Serious: No
  Sender: FDA-Public Use
  Company Number: US-EXELIXIS-CABO-18015531

PATIENT
  Sex: Female

DRUGS (12)
  1. HYDROCODONE/ACETAMINOPHEN [Concomitant]
     Active Substance: ACETAMINOPHEN\HYDROCODONE
  2. PANTOPRAZOLE SODIUM. [Concomitant]
     Active Substance: PANTOPRAZOLE SODIUM
  3. GABAPENTIN. [Concomitant]
     Active Substance: GABAPENTIN
  4. MULTIVITAMINS, COMBINATIONS [Concomitant]
     Active Substance: VITAMINS
  5. METOPROLOL SUCCINATE. [Concomitant]
     Active Substance: METOPROLOL SUCCINATE
  6. ACETAMINOPHEN. [Concomitant]
     Active Substance: ACETAMINOPHEN
  7. ESCITALOPRAM OXALATE. [Concomitant]
     Active Substance: ESCITALOPRAM OXALATE
  8. PRAVASTATIN SODIUM. [Concomitant]
     Active Substance: PRAVASTATIN SODIUM
  9. TRAMADOL. [Concomitant]
     Active Substance: TRAMADOL
  10. WOMEN MULTI [Concomitant]
  11. NIFEDIPINE. [Concomitant]
     Active Substance: NIFEDIPINE
  12. CABOMETYX [Suspect]
     Active Substance: CABOZANTINIB S-MALATE
     Indication: BRAIN NEOPLASM MALIGNANT
     Dosage: 40 MG, QD
     Route: 048
     Dates: start: 20180726

REACTIONS (2)
  - Fatigue [Not Recovered/Not Resolved]
  - Off label use [Unknown]
